FAERS Safety Report 5293888-6 (Version None)
Quarter: 2007Q2

REPORT INFORMATION
  Report Type: 
  Country: None (occurrence: None)
  Receive Date: 20070405
  Receipt Date: 20070328
  Transmission Date: 20071010
  Serious: Yes (Hospitalization, Other)
  Sender: FDA-Public Use
  Company Number: 163-21880-07031630

PATIENT
  Age: 80 Year
  Sex: Male
  Weight: 75.2971 kg

DRUGS (2)
  1. REVLIMID [Suspect]
     Indication: PROSTATE CANCER
     Dosage: 25 MG, DAILY FOR 21 DAYS THEN 7 DAYS OFF, ORAL
     Route: 048
     Dates: start: 20060925
  2. GM-CSF (GRANULOCYTE MACROPHAGE COLONY STIM FACTOR) [Suspect]
     Indication: PROSTATE CANCER
     Dosage: 250 UG, EVERY MON., WED., AND FRI., SUBCUTANEOUS
     Route: 058
     Dates: start: 20060925

REACTIONS (4)
  - CONFUSIONAL STATE [None]
  - NEUTROPHIL COUNT DECREASED [None]
  - PLATELET COUNT DECREASED [None]
  - TREATMENT NONCOMPLIANCE [None]
